FAERS Safety Report 18580553 (Version 2)
Quarter: 2020Q4

REPORT INFORMATION
  Report Type: Spontaneous
  Country: US (occurrence: US)
  Receive Date: 20201204
  Receipt Date: 20201230
  Transmission Date: 20210114
  Serious: No
  Sender: FDA-Public Use
  Company Number: US-PFIZER INC-2020477535

PATIENT
  Age: 70 Year
  Sex: Female
  Weight: 72.56 kg

DRUGS (2)
  1. IBRANCE [Suspect]
     Active Substance: PALBOCICLIB
     Indication: BREAST CANCER FEMALE
     Dosage: 125 MG, CYCLIC (21 DAYS ON, 7 DAYS OFF/1 DAILY FOR 21 DAYS/ I STARTED BACK ON MY 2ND MONTH TODAY)
     Route: 048
     Dates: start: 20201116
  2. IBRANCE [Suspect]
     Active Substance: PALBOCICLIB
     Dosage: 125 MG, CYCLIC (21 DAYS ON, 7 DAYS OFF/1 DAILY FOR 21 DAYS/ I STARTED BACK ON MY 2ND MONTH TODAY)
     Route: 048
     Dates: start: 20201223

REACTIONS (2)
  - Fatigue [Unknown]
  - Neutrophil count decreased [Unknown]
